FAERS Safety Report 9009572 (Version 1)
Quarter: 2013Q1

REPORT INFORMATION
  Report Type: Spontaneous
  Country: CN (occurrence: CN)
  Receive Date: 20130110
  Receipt Date: 20130110
  Transmission Date: 20140127
  Serious: Yes (Other)
  Sender: FDA-Public Use
  Company Number: CN-JNJFOC-20130103679

PATIENT
  Age: 49 Year
  Sex: Male

DRUGS (2)
  1. TRIATOP [Suspect]
     Indication: PRURITUS
     Route: 061
     Dates: start: 20130107, end: 20130107
  2. TRIATOP [Suspect]
     Indication: DANDRUFF
     Route: 061
     Dates: start: 20130107, end: 20130107

REACTIONS (1)
  - Swelling face [Not Recovered/Not Resolved]
